FAERS Safety Report 9334929 (Version 1)
Quarter: 2013Q2

REPORT INFORMATION
  Report Type: Spontaneous
  Country: US (occurrence: US)
  Receive Date: 20130606
  Receipt Date: 20130606
  Transmission Date: 20140414
  Serious: No
  Sender: FDA-Public Use
  Company Number: US-AMGEN-USASP2013019487

PATIENT
  Age: 85 Year
  Sex: Female
  Weight: 83.9 kg

DRUGS (7)
  1. PROLIA [Suspect]
     Indication: OSTEOPOROSIS POSTMENOPAUSAL
     Dosage: 60 MG, Q6MO
     Route: 058
     Dates: start: 20120411
  2. PROLIA [Suspect]
     Dosage: 60 MG, Q6MO
     Route: 058
     Dates: start: 20121011
  3. CALCIUM [Concomitant]
  4. DILTIAZEM [Concomitant]
  5. VITAMIN D                          /00107901/ [Concomitant]
  6. GLUCOSAMINE CHONDROITIN            /01430901/ [Concomitant]
  7. LUTEIN                             /01638501/ [Concomitant]

REACTIONS (4)
  - Joint swelling [Recovering/Resolving]
  - Oedema peripheral [Recovering/Resolving]
  - Asthenia [Recovered/Resolved]
  - Pain in extremity [Recovering/Resolving]
